FAERS Safety Report 4342078-X (Version None)
Quarter: 2004Q2

REPORT INFORMATION
  Report Type: 
  Country: None (occurrence: None)
  Receive Date: 20040420
  Receipt Date: 20040119
  Transmission Date: 20050107
  Serious: Yes (Hospitalization, Disabling, Other)
  Sender: FDA-Public Use
  Company Number: JP-MERCK-0401USA01361

PATIENT
  Age: 63 Year
  Sex: Female
  Weight: 52 kg

DRUGS (9)
  1. BIOFERMIN R [Concomitant]
     Route: 065
  2. FOSAMAX [Suspect]
     Indication: OSTEOPOROSIS
     Route: 048
     Dates: start: 20030624, end: 20030705
  3. AZOSEMIDE [Concomitant]
     Indication: CARDIAC FAILURE CHRONIC
     Route: 065
     Dates: start: 20010416, end: 20030706
  4. EBASTINE [Concomitant]
     Indication: PRURITUS
     Route: 065
     Dates: start: 20030425, end: 20030706
  5. HYDROXYZINE HYDROCHLORIDE [Suspect]
     Indication: PRURITUS
     Route: 048
     Dates: start: 20030621, end: 20030628
  6. LANSOPRAZOLE [Concomitant]
     Indication: REFLUX OESOPHAGITIS
     Route: 065
     Dates: start: 20010416, end: 20030706
  7. MOSAPRIDE CITRATE [Concomitant]
     Indication: GASTRITIS
     Route: 065
     Dates: start: 20010507, end: 20030706
  8. SENNOSIDES [Concomitant]
     Indication: CONSTIPATION
     Route: 065
     Dates: start: 20020415, end: 20030706
  9. SPIRONOLACTONE [Concomitant]
     Indication: CARDIAC FAILURE CHRONIC
     Route: 065
     Dates: start: 20010416, end: 20030706

REACTIONS (5)
  - FRACTURE [None]
  - MALAISE [None]
  - NEPHRITIS INTERSTITIAL [None]
  - PHARYNGITIS [None]
  - RENAL FAILURE ACUTE [None]
